FAERS Safety Report 7973468-1 (Version None)
Quarter: 2011Q4

REPORT INFORMATION
  Report Type: 
  Country: None (occurrence: None)
  Receive Date: 20111209
  Receipt Date: 20111124
  Transmission Date: 20120403
  Serious: Yes (Life-Threatening, Hospitalization)
  Sender: FDA-Public Use
  Company Number: 1000023430

PATIENT
  Age: 70 Year
  Sex: Female
  Weight: 73 kg

DRUGS (13)
  1. ASS (ACETYLSALICYLIC ACID) (ACETYLSALICYLIC ACID) [Concomitant]
  2. SYMBICORT (BUDESONIDE W/FORMOTEROL FUMARATE, FORMOTEROL FUMARATE) (BUD [Concomitant]
  3. SIMVASTATIN [Concomitant]
  4. ALLOPURINOL [Concomitant]
  5. BRONCHORETARD (THEOPHYLLINE) (THEOPHYLLINE) [Concomitant]
  6. TROMPHYLLIN (THEOPHYLLINE) (100 MILLIGRAM) (THEOPHYLLINE) [Concomitant]
  7. METFORMIN HCL [Concomitant]
  8. L THYROXINE (LEVOTHYROXINE SODIUM) (LEVOTHYROXINE SODIUM) [Concomitant]
  9. SPIRVA RESPIMAT (TIOTROPIUM BROMIDE) (TIOTROPIUM BROMIDE) [Concomitant]
  10. RAMIPRIL [Concomitant]
  11. FUROSEMIDE [Concomitant]
  12. ROFLUMILAST (ROFLUMILAST) (TABLETS) [Suspect]
     Indication: CHRONIC OBSTRUCTIVE PULMONARY DISEASE
     Dosage: 500 MCG,ORAL
     Route: 048
     Dates: start: 20110126, end: 20110614
  13. VERAPAMIL (VERAPAMIL) (120 MILLIGRAM(S)/SQ.METER) (VERAPAMIL) [Concomitant]

REACTIONS (5)
  - SYNCOPE [None]
  - DIZZINESS [None]
  - ATRIAL FIBRILLATION [None]
  - HYPOKALAEMIA [None]
  - HYPERTHYROIDISM [None]
